FAERS Safety Report 19410342 (Version 4)
Quarter: 2022Q1

REPORT INFORMATION
  Report Type: Report from Study
  Country: US (occurrence: US)
  Receive Date: 20210614
  Receipt Date: 20220201
  Transmission Date: 20220423
  Serious: No
  Sender: FDA-Public Use
  Company Number: US-AMRYT PHARMACEUTICALS DAC-AEGR005168

PATIENT
  Age: 32 Year
  Sex: Male
  Weight: 61.224 kg

DRUGS (5)
  1. METRELEPTIN [Suspect]
     Active Substance: METRELEPTIN
     Indication: Congenital generalised lipodystrophy
     Dosage: 2.5 MILLIGRAM, QD
     Route: 058
     Dates: start: 20210424
  2. METRELEPTIN [Suspect]
     Active Substance: METRELEPTIN
     Dosage: 5 MILLIGRAM, QD
     Route: 058
     Dates: start: 20210424
  3. HUMULIN R [Concomitant]
     Active Substance: INSULIN HUMAN
     Indication: Diabetes mellitus
     Dosage: 1.9 UNITS, PUMP, PER HOUR
  4. FENOFIBRATE [Concomitant]
     Active Substance: FENOFIBRATE
     Indication: Blood triglycerides increased
     Dosage: 145 MILLIGRAM, QD
     Route: 048
  5. CARVEDILOL [Concomitant]
     Active Substance: CARVEDILOL
     Indication: Hypertension
     Dosage: 12.5 MILLIGRAM, BID
     Route: 048
     Dates: start: 20210630

REACTIONS (7)
  - Catheterisation cardiac [Recovered/Resolved]
  - Hepatic atrophy [Unknown]
  - Blood triglycerides increased [Not Recovered/Not Resolved]
  - Sinusitis [Recovered/Resolved]
  - Weight decreased [Not Recovered/Not Resolved]
  - Hypoglycaemia [Recovered/Resolved]
  - Diet noncompliance [Unknown]

NARRATIVE: CASE EVENT DATE: 20210505
